FAERS Safety Report 4629273-7 (Version None)
Quarter: 2005Q2

REPORT INFORMATION
  Report Type: 
  Country: None (occurrence: None)
  Receive Date: 20050407
  Receipt Date: 20050330
  Transmission Date: 20051028
  Serious: Yes (Other)
  Sender: FDA-Public Use
  Company Number: US-JNJFOC-20040704052

PATIENT
  Sex: Female

DRUGS (1)
  1. DURAGESIC-100 [Suspect]
     Route: 049

REACTIONS (9)
  - AGITATION [None]
  - ANXIETY [None]
  - CONFUSIONAL STATE [None]
  - EMOTIONAL DISTRESS [None]
  - INJURY [None]
  - OVERDOSE [None]
  - PAIN [None]
  - PULMONARY OEDEMA [None]
  - RESPIRATORY FUME INHALATION DISORDER [None]
